FAERS Safety Report 17956082 (Version 1)
Quarter: 2020Q2

REPORT INFORMATION
  Report Type: Spontaneous
  Country: US (occurrence: US)
  Receive Date: 20200629
  Receipt Date: 20200629
  Transmission Date: 20200714
  Serious: No
  Sender: FDA-Public Use
  Company Number: US-PFIZER INC-2020247393

PATIENT
  Age: 80 Year
  Sex: Female
  Weight: 65.77 kg

DRUGS (3)
  1. MEDROXYPROGESTERONE ACETATE. [Suspect]
     Active Substance: MEDROXYPROGESTERONE ACETATE
     Indication: MENOPAUSE
     Dosage: 2.5 MG, CYCLIC (ONE HALF OF A 5 MG DAILY BY MOUTH FOR 10 DAYS AND THEN OFF 20 DAYS)
     Route: 048
  2. ESTRADIOL. [Concomitant]
     Active Substance: ESTRADIOL
     Indication: HORMONE THERAPY
     Dosage: 2.5 MG, CYCLIC(AT ONE HALF OF A 5MG FOR THE NEXT 20 DAYS TO COMPLETE HER CYCLING HORMONE THERAPY)
  3. MEDROXYPROGESTERONE ACETATE. [Suspect]
     Active Substance: MEDROXYPROGESTERONE ACETATE
     Indication: HORMONE THERAPY

REACTIONS (1)
  - Blood pressure increased [Unknown]
